FAERS Safety Report 8947884 (Version 4)
Quarter: 2013Q1

REPORT INFORMATION
  Report Type: Spontaneous
  Country: US (occurrence: None)
  Receive Date: 20121127
  Receipt Date: 20130110
  Transmission Date: 20140127
  Serious: Yes (Death)
  Sender: FDA-Public Use
  Company Number: ACO_33044_2012

PATIENT
  Age: 73 Year
  Sex: Male

DRUGS (9)
  1. AMPYRA [Suspect]
     Indication: PRODUCT USED FOR UNKNOWN INDICATION
     Route: 048
     Dates: start: 201101, end: 20121119
  2. AMBIEN (ZOLPIDEM TARTRATE) [Concomitant]
  3. ZOLOFT (SERTRALINE HYDROCHLORIDE) [Concomitant]
  4. COPAXONE (GLATIRAMER ACETATE) [Concomitant]
  5. FISH OIL (FISH OIL) [Concomitant]
  6. MULTIVITAMIN (VITAMINS NOS) [Concomitant]
  7. ASPIRIN (ACETYLSALICYLIC ACID) [Concomitant]
  8. GLUCOSAMINE AND CHONDROITIN (CHONDROITIN SULFATE SODIUM, GLUCOSAMINE) [Concomitant]
  9. ZOLPIDEM (ZOLPIDEM TARTRATE) [Concomitant]

REACTIONS (1)
  - Death [None]
